FAERS Safety Report 4622200-8 (Version None)
Quarter: 2005Q1

REPORT INFORMATION
  Report Type: 
  Country: None (occurrence: None)
  Receive Date: 20050324
  Receipt Date: 20050324
  Transmission Date: 20050727
  Serious: Yes (Other)
  Sender: FDA-Public Use
  Company Number: None

PATIENT
  Sex: Male
  Weight: 104.3273 kg

DRUGS (11)
  1. LIPITOR [Suspect]
     Indication: BLOOD CHOLESTEROL INCREASED
     Dosage: 40 MG ONCE DAILY ORALLY
     Route: 048
     Dates: end: 20050101
  2. TRICOR [Suspect]
     Indication: BLOOD TRIGLYCERIDES INCREASED
     Dosage: 160 MG DAILY ORALLY
     Route: 048
     Dates: start: 20040701
  3. ZETIA [Concomitant]
  4. GLIPIZIDE [Concomitant]
  5. METFORMIN HCL [Concomitant]
  6. ATENOLOL [Concomitant]
  7. COZAAR [Concomitant]
  8. HYDROCHLOROTHIAZIDE [Concomitant]
  9. MEGA VITAMINS [Concomitant]
  10. ALPHA LIPOIC ACID [Concomitant]
  11. COENZYME [Concomitant]

REACTIONS (5)
  - ASTHENIA [None]
  - DYSSTASIA [None]
  - GAIT DISTURBANCE [None]
  - HYPOAESTHESIA [None]
  - SENSORY DISTURBANCE [None]
